FAERS Safety Report 8264526 (Version 2)
Quarter: 2012Q4

REPORT INFORMATION
  Report Type: 
  Country: US (occurrence: US)
  Receive Date: 20111128
  Receipt Date: 20121221
  Transmission Date: 20130627
  Serious: Yes (Hospitalization)
  Sender: FDA-Public Use
  Company Number: US-AMGEN-USASP2011061601

PATIENT
  Sex: Female

DRUGS (2)
  1. ENBREL [Suspect]
     Indication: RHEUMATOID ARTHRITIS
     Dosage: 50 mg, qwk
     Dates: start: 2004
  2. ENBREL [Suspect]
     Indication: ANKYLOSING SPONDYLITIS

REACTIONS (15)
  - Transient ischaemic attack [Recovered/Resolved]
  - Rheumatoid arthritis [Not Recovered/Not Resolved]
  - Vaginal infection [Not Recovered/Not Resolved]
  - Speech disorder [Not Recovered/Not Resolved]
  - Increased upper airway secretion [Not Recovered/Not Resolved]
  - Neck pain [Not Recovered/Not Resolved]
  - Nasal dryness [Not Recovered/Not Resolved]
  - Rash papular [Not Recovered/Not Resolved]
  - Scab [Not Recovered/Not Resolved]
  - Bone swelling [Not Recovered/Not Resolved]
  - Joint swelling [Not Recovered/Not Resolved]
  - Hand deformity [Not Recovered/Not Resolved]
  - Sinusitis [Not Recovered/Not Resolved]
  - Oral fungal infection [Recovered/Resolved]
  - Fungal infection [Not Recovered/Not Resolved]
